FAERS Safety Report 8932867 (Version 3)
Quarter: 2015Q4

REPORT INFORMATION
  Report Type: Spontaneous
  Country: US (occurrence: US)
  Receive Date: 20121129
  Receipt Date: 20151204
  Transmission Date: 20160305
  Serious: Yes (Hospitalization)
  Sender: FDA-Public Use
  Company Number: US-BAYER-2012-124552

PATIENT
  Age: 41 Year
  Sex: Female
  Weight: 65.76 kg

DRUGS (4)
  1. STRATTERA [Concomitant]
     Active Substance: ATOMOXETINE HYDROCHLORIDE
     Indication: ATTENTION DEFICIT/HYPERACTIVITY DISORDER
  2. YAZ [Suspect]
     Active Substance: DROSPIRENONE\ETHINYL ESTRADIOL
     Indication: CONTRACEPTION
     Dosage: UNK
     Dates: start: 200806, end: 20120628
  3. BEYAZ [Suspect]
     Active Substance: DROSPIRENONE\ETHINYL ESTRADIOL\LEVOMEFOLATE CALCIUM
     Indication: CONTRACEPTION
     Dosage: UNK
     Dates: start: 200806, end: 20120628
  4. YASMIN [Suspect]
     Active Substance: DROSPIRENONE\ETHINYL ESTRADIOL
     Dosage: UNK
     Dates: start: 200806, end: 20120628

REACTIONS (9)
  - General physical health deterioration [Recovered/Resolved]
  - Reading disorder [Recovered/Resolved]
  - Speech disorder [Recovered/Resolved]
  - Dysgraphia [Recovered/Resolved]
  - Pain [Recovered/Resolved]
  - Cerebrovascular accident [Recovered/Resolved]
  - Emotional distress [None]
  - Anxiety [None]
  - Injury [Recovered/Resolved]

NARRATIVE: CASE EVENT DATE: 20120628
